FAERS Safety Report 14236706 (Version 2)
Quarter: 2017Q4

REPORT INFORMATION
  Report Type: Spontaneous
  Country: JP (occurrence: JP)
  Receive Date: 20171129
  Receipt Date: 20171226
  Transmission Date: 20180321
  Serious: Yes (Hospitalization)
  Sender: FDA-Public Use
  Company Number: PHJP2017JP034643

PATIENT
  Age: 67 Year
  Sex: Male

DRUGS (1)
  1. NEORAL [Suspect]
     Active Substance: CYCLOSPORINE
     Indication: CYTOPENIA
     Dosage: UNK
     Route: 048

REACTIONS (3)
  - Cerebral infarction [Recovered/Resolved]
  - Product use in unapproved indication [Unknown]
  - Cerebral infarction [Unknown]
